FAERS Safety Report 23695989 (Version 1)
Quarter: 2024Q2

REPORT INFORMATION
  Report Type: Other
  Country: CN (occurrence: None)
  Receive Date: 20240402
  Receipt Date: 20240402
  Transmission Date: 20240715
  Serious: Yes (Other)
  Sender: FDA-Public Use
  Company Number: CN-ROCHE-3533936

PATIENT

DRUGS (3)
  1. BEVACIZUMAB [Suspect]
     Active Substance: BEVACIZUMAB
     Indication: Colorectal cancer
     Dosage: ADDED WITH 0.9% SODIUM CHLORIDE INJECTION 100 ML VIA INTRAVENOUS DRIP. THE FIRST DOSE ADMINISTERED F
     Route: 041
  2. CAPECITABINE [Suspect]
     Active Substance: CAPECITABINE
     Indication: Colorectal cancer
     Dosage: TREATED WITH 3 WEEKS AS A COURSE OF TREATMENT, A TOTAL OF 6 COURSES OF TREATMENT, AND FOLLOWED UP FO
     Route: 048
  3. RALTITREXED [Suspect]
     Active Substance: RALTITREXED
     Indication: Colorectal cancer
     Dosage: ADDED AND DISSOLVED IN 100 ML 0.9% SODIUM CHLORIDE INJECTION VIA INTRAVENOUS DRIP AT A DOSE OF 3 MG/
     Route: 041

REACTIONS (9)
  - Palmar-plantar erythrodysaesthesia syndrome [Unknown]
  - Nausea [Unknown]
  - Vomiting [Unknown]
  - Neurotoxicity [Unknown]
  - Diarrhoea [Unknown]
  - Anaemia [Unknown]
  - Platelet count decreased [Unknown]
  - Hepatic function abnormal [Unknown]
  - Myelosuppression [Unknown]
